FAERS Safety Report 16526462 (Version 4)
Quarter: 2019Q4

REPORT INFORMATION
  Report Type: Report from Study
  Country: US (occurrence: US)
  Receive Date: 20190703
  Receipt Date: 20191126
  Transmission Date: 20200122
  Serious: Yes (Hospitalization)
  Sender: FDA-Public Use
  Company Number: US-ACTELION-A-NJ2019-190295

PATIENT
  Age: 53 Year
  Sex: Female
  Weight: 72.56 kg

DRUGS (1)
  1. OPSUMIT [Suspect]
     Active Substance: MACITENTAN
     Indication: PULMONARY ARTERIAL HYPERTENSION
     Dosage: 10 MG, QD
     Route: 048

REACTIONS (8)
  - Cardiomegaly [Unknown]
  - Syncope [Unknown]
  - Abdominal distension [Unknown]
  - Therapy non-responder [Unknown]
  - Joint swelling [Unknown]
  - Resuscitation [Unknown]
  - Cellulitis [Unknown]
  - Neck pain [Unknown]

NARRATIVE: CASE EVENT DATE: 20190427
